FAERS Safety Report 9845327 (Version 2)
Quarter: 2014Q2

REPORT INFORMATION
  Report Type: Spontaneous
  Country: US (occurrence: None)
  Receive Date: 20140122
  Receipt Date: 20140609
  Transmission Date: 20141212
  Serious: Yes (Death, Hospitalization)
  Sender: FDA-Public Use
  Company Number: 2014010358

PATIENT
  Age: 82 Year
  Sex: Male

DRUGS (12)
  1. CARBOPLATIN [Suspect]
     Indication: METASTATIC MALIGNANT MELANOMA
     Dosage: 6 AUC EVERY 3 WEEK, INTRAVENOUS
     Route: 042
     Dates: start: 20130703
  2. PACLITAXEL [Suspect]
     Indication: METASTATIC MALIGNANT MELANOMA
     Dosage: 175 MILLIGRAM/SQ. METER 1/3 WEEK, INTRAVENOUS
     Route: 042
     Dates: start: 20130703
  3. FRAGMIN [Suspect]
     Indication: VENOUS THROMBOSIS
     Dosage: UNK
     Dates: start: 20131021
  4. GLUCOSAMINE (GLUCOSAMINE) [Concomitant]
  5. MULTIVITAMIN (ASCORBIC ACID ERGOCALCIFEROL, FOLIC ACID RETINOL, TOCOPHEROL, VITAMIN B NOS) [Concomitant]
  6. IBUPROFEN (IBUPROFEN) [Concomitant]
  7. HYDROCORTISONE (HYDROCORTISONE) [Concomitant]
  8. LEVOTHYROXINE (LEVOTHYROXINE SODIUM) [Concomitant]
  9. PROCHLORPERAZINE (PROCHLORPERZAINE) [Concomitant]
  10. DALTEPARIN (HEPARIN-FRACTION, SODIUM SALT) [Concomitant]
  11. KEPPRA (LEVETIRACETAM) [Concomitant]
  12. DEXAMETHASONE (DEXAMETHASONE) [Concomitant]

REACTIONS (7)
  - Metastatic malignant melanoma [None]
  - Malignant neoplasm progression [None]
  - Cerebrovascular accident [None]
  - Mental status changes [None]
  - Thrombosis [None]
  - Unresponsive to stimuli [None]
  - Cerebral haemorrhage [None]
